FAERS Safety Report 13683235 (Version 1)
Quarter: 2017Q2

REPORT INFORMATION
  Report Type: Report from Study
  Country: FR (occurrence: FR)
  Receive Date: 20170623
  Receipt Date: 20170623
  Transmission Date: 20170830
  Serious: Yes (Other)
  Sender: FDA-Public Use
  Company Number: FR-CELLTRION HEALTHCARE JAPAN K.K.-2017FR008182

PATIENT

DRUGS (1)
  1. INFLECTRA [Suspect]
     Active Substance: INFLIXIMAB-DYYB
     Indication: PRODUCT USED FOR UNKNOWN INDICATION
     Dosage: 270 MG, EVERY 8 WEEKS
     Route: 065
     Dates: start: 20160616

REACTIONS (1)
  - Psoriasis [Recovering/Resolving]

NARRATIVE: CASE EVENT DATE: 20170302
